FAERS Safety Report 5716558-6 (Version None)
Quarter: 2008Q2

REPORT INFORMATION
  Report Type: 
  Country: None (occurrence: None)
  Receive Date: 20080424
  Receipt Date: 20080416
  Transmission Date: 20081010
  Serious: Yes (Other)
  Sender: FDA-Public Use
  Company Number: JP-SANOFI-SYNTHELABO-A01200804498

PATIENT
  Age: 70 Year
  Sex: Male

DRUGS (4)
  1. ISOVORIN [Concomitant]
     Dosage: UNK
     Route: 041
     Dates: start: 20071122, end: 20071122
  2. FLUOROURACIL [Suspect]
     Dosage: 650MG/BODY IN BOLUS THEN 2000MG/BODY AS CONTINUOUS INFUSION ON DAY 1-2
     Route: 042
     Dates: start: 20071122, end: 20071123
  3. ELPLAT [Suspect]
     Indication: DRUG USE FOR UNKNOWN INDICATION
     Dosage: 140MG/BODY IN INFUSION ON DAY 1
     Route: 041
     Dates: start: 20071122, end: 20071122
  4. AVASTIN [Suspect]
     Dosage: UNK
     Route: 041
     Dates: start: 20071122, end: 20071122

REACTIONS (1)
  - INTESTINAL PERFORATION [None]
